FAERS Safety Report 6497484-4 (Version None)
Quarter: 2009Q4

REPORT INFORMATION
  Report Type: 
  Country: None (occurrence: None)
  Receive Date: 20091215
  Receipt Date: 20091202
  Transmission Date: 20100525
  Serious: Yes (Other)
  Sender: FDA-Public Use
  Company Number: FR-ELI_LILLY_AND_COMPANY-FR200911005189

PATIENT
  Age: 67 Year
  Sex: Female
  Weight: 56 kg

DRUGS (4)
  1. OPTRUMA [Suspect]
     Indication: OSTEOPENIA
     Dosage: 60 MG, DAILY (1/D)
     Route: 048
     Dates: start: 20040601
  2. OROCAL [Concomitant]
     Dosage: UNK, UNKNOWN
     Route: 065
  3. LERCANIDIPINE [Concomitant]
     Indication: HYPERTENSION
     Dosage: UNK, UNKNOWN
     Route: 065
  4. COLPOTROPHINE [Concomitant]
     Dosage: UNK, UNKNOWN
     Route: 065

REACTIONS (1)
  - UTERINE POLYP [None]
